FAERS Safety Report 11500306 (Version 2)
Quarter: 2015Q4

REPORT INFORMATION
  Report Type: Spontaneous
  Country: SA (occurrence: SA)
  Receive Date: 20150914
  Receipt Date: 20151026
  Transmission Date: 20160304
  Serious: Yes (Hospitalization)
  Sender: FDA-Public Use
  Company Number: SA-BIOGENIDEC-2015BI123577

PATIENT
  Age: 23 Year
  Sex: Male

DRUGS (10)
  1. REMIFENTANIL [Concomitant]
     Active Substance: REMIFENTANIL
  2. VECURONIUM BROMIDE. [Concomitant]
     Active Substance: VECURONIUM BROMIDE
  3. DEXAMETHASONE. [Concomitant]
     Active Substance: DEXAMETHASONE
     Route: 042
  4. ETOMIDATE. [Concomitant]
     Active Substance: ETOMIDATE
  5. XYLOCAINE WITH EPINEPHRINE (EPINEPHRINE BITARTRATE\LIDOCAINE HYDROCHLORIDE) [Concomitant]
     Active Substance: EPINEPHRINE BITARTRATE\LIDOCAINE HYDROCHLORIDE
  6. SEVOFLURANE. [Concomitant]
     Active Substance: SEVOFLURANE
  7. LIDOCAINE. [Concomitant]
     Active Substance: LIDOCAINE
  8. MIDAZOLAM [Concomitant]
     Active Substance: MIDAZOLAM\MIDAZOLAM HYDROCHLORIDE
     Route: 030
  9. AVONEX [Suspect]
     Active Substance: INTERFERON BETA-1A
     Indication: RELAPSING-REMITTING MULTIPLE SCLEROSIS
     Route: 030
     Dates: start: 2008
  10. CEFAZOLIN [Concomitant]
     Active Substance: CEFAZOLIN
     Route: 042

REACTIONS (1)
  - Dentofacial anomaly [Recovered/Resolved]

NARRATIVE: CASE EVENT DATE: 201301
